FAERS Safety Report 12202642 (Version 2)
Quarter: 2016Q2

REPORT INFORMATION
  Report Type: Spontaneous
  Country: FR (occurrence: FR)
  Receive Date: 20160322
  Receipt Date: 20160418
  Transmission Date: 20160815
  Serious: Yes (Other)
  Sender: FDA-Public Use
  Company Number: FR-BAXTER-2016BAX012891

PATIENT
  Age: 47 Year
  Sex: Male

DRUGS (36)
  1. RAPAMUNE [Suspect]
     Active Substance: SIROLIMUS
     Route: 048
     Dates: start: 2012
  2. ENDOXAN 1000 MG, POUDRE POUR SOLUTION INJECTABLE [Suspect]
     Active Substance: CYCLOPHOSPHAMIDE
     Dosage: 6 COURSES OF R-CHOP
     Route: 042
     Dates: start: 200502
  3. SOLUPRED [Suspect]
     Active Substance: PREDNISOLONE
     Indication: RENAL TRANSPLANT
     Route: 048
     Dates: start: 200802
  4. SOLUPRED [Suspect]
     Active Substance: PREDNISOLONE
     Route: 048
     Dates: start: 2012
  5. VINCRISTINE [Suspect]
     Active Substance: VINCRISTINE
     Dosage: 6 COURSES OF R-CHOP
     Route: 042
     Dates: start: 200502
  6. MABTHERA [Suspect]
     Active Substance: RITUXIMAB
     Dosage: DAY 1, R-MINE COURSE 3
     Route: 042
     Dates: start: 20051011, end: 20051011
  7. METHYL GAG [Suspect]
     Active Substance: MITOGUAZONE
     Indication: NON-HODGKIN^S LYMPHOMA
     Dosage: D2 AND D6, R-MINE COURSE 1
     Route: 042
     Dates: start: 20050727
  8. ETOPOPHOS [Suspect]
     Active Substance: ETOPOSIDE PHOSPHATE
     Indication: NON-HODGKIN^S LYMPHOMA
     Dosage: D2, D3 AND D4, R-MINE COURSE 1
     Route: 042
     Dates: start: 20050727
  9. ETOPOPHOS [Suspect]
     Active Substance: ETOPOSIDE PHOSPHATE
     Dosage: D2, D3 AND D4, R-MINE COURSE 3
     Route: 042
     Dates: start: 20051011, end: 20051014
  10. HOLOXAN 2000 MG, POUDRE POUR USAGE PARENT?RAL [Suspect]
     Active Substance: IFOSFAMIDE
     Dosage: D2, D3, D4, D5 AND D6, R-MINE COURSE 3
     Route: 042
     Dates: start: 20051011, end: 20051016
  11. IMUREL [Suspect]
     Active Substance: AZATHIOPRINE SODIUM
     Indication: RENAL TRANSPLANT
     Route: 048
     Dates: start: 1993, end: 199807
  12. VINORELBINE [Suspect]
     Active Substance: VINORELBINE\VINORELBINE TARTRATE
     Indication: NON-HODGKIN^S LYMPHOMA
     Dosage: D2 AND D6, R-MINE COURSE 1
     Route: 042
     Dates: start: 20050727
  13. VINORELBINE [Suspect]
     Active Substance: VINORELBINE\VINORELBINE TARTRATE
     Dosage: D2 AND D6, R-MINE COURSE 2
     Route: 042
     Dates: start: 20050831
  14. HOLOXAN 2000 MG, POUDRE POUR USAGE PARENT?RAL [Suspect]
     Active Substance: IFOSFAMIDE
     Indication: NON-HODGKIN^S LYMPHOMA
     Dosage: D2, D3, D4, D5 AND D6, R-MINE COURSE 1
     Route: 042
     Dates: start: 20050727
  15. RAPAMUNE [Suspect]
     Active Substance: SIROLIMUS
     Indication: RENAL TRANSPLANT
     Route: 048
     Dates: start: 200501
  16. RAPAMUNE [Suspect]
     Active Substance: SIROLIMUS
     Route: 048
     Dates: start: 200802
  17. NEORAL [Suspect]
     Active Substance: CYCLOSPORINE
     Route: 048
     Dates: start: 199807
  18. DOXORUBICIN [Suspect]
     Active Substance: DOXORUBICIN
     Indication: NON-HODGKIN^S LYMPHOMA
     Dosage: 6 COURSES OF R-MINI-CHOP
     Route: 042
     Dates: start: 200404, end: 200409
  19. METHYL GAG [Suspect]
     Active Substance: MITOGUAZONE
     Dosage: D2 AND D6, R-MINE COURSE 2
     Route: 042
     Dates: start: 20050831
  20. METHYL GAG [Suspect]
     Active Substance: MITOGUAZONE
     Dosage: D2 AND D6, R-MINE COURSE 3
     Route: 042
     Dates: start: 20051011, end: 20051016
  21. NEORAL [Suspect]
     Active Substance: CYCLOSPORINE
     Route: 048
     Dates: start: 199902
  22. MABTHERA [Suspect]
     Active Substance: RITUXIMAB
     Indication: NON-HODGKIN^S LYMPHOMA
     Dosage: 6 COURSES OF R-MINI-CHOP
     Route: 042
     Dates: start: 200404, end: 200409
  23. MABTHERA [Suspect]
     Active Substance: RITUXIMAB
     Dosage: DAY 1, R-MINE COURSE 2
     Route: 042
     Dates: start: 20050831
  24. VINORELBINE [Suspect]
     Active Substance: VINORELBINE\VINORELBINE TARTRATE
     Dosage: D2 AND D6, R-MINE COURSE 3
     Route: 042
     Dates: start: 20051011, end: 20051016
  25. HOLOXAN 2000 MG, POUDRE POUR USAGE PARENT?RAL [Suspect]
     Active Substance: IFOSFAMIDE
     Dosage: D2, D3, D4, D5 AND D6, R-MINE COURSE 2
     Route: 042
     Dates: start: 20050831
  26. NEORAL [Suspect]
     Active Substance: CYCLOSPORINE
     Indication: RENAL TRANSPLANT
     Route: 048
     Dates: start: 1993
  27. SOLUPRED [Suspect]
     Active Substance: PREDNISOLONE
     Route: 048
     Dates: start: 201004
  28. DOXORUBICIN [Suspect]
     Active Substance: DOXORUBICIN
     Dosage: 6 COURSES OF R-CHOP
     Route: 042
     Dates: start: 200502
  29. VINCRISTINE [Suspect]
     Active Substance: VINCRISTINE
     Indication: NON-HODGKIN^S LYMPHOMA
     Dosage: 6 COURSES OF R-MINI-CHOP
     Route: 042
     Dates: start: 200404, end: 200409
  30. ENDOXAN 1000 MG, POUDRE POUR SOLUTION INJECTABLE [Suspect]
     Active Substance: CYCLOPHOSPHAMIDE
     Indication: NON-HODGKIN^S LYMPHOMA
     Dosage: 6 COURSES OF R-MINI-CHOP
     Route: 042
     Dates: start: 200404, end: 200409
  31. RAPAMUNE [Suspect]
     Active Substance: SIROLIMUS
     Route: 048
     Dates: start: 201004
  32. NEORAL [Suspect]
     Active Substance: CYCLOSPORINE
     Route: 048
     Dates: end: 20000621
  33. MABTHERA [Suspect]
     Active Substance: RITUXIMAB
     Dosage: DAY 1, R-MINE COURSE 1
     Route: 042
     Dates: start: 20050727
  34. PROGRAF [Suspect]
     Active Substance: TACROLIMUS\TACROLIMUS ANHYDROUS
     Indication: RENAL TRANSPLANT
     Route: 048
     Dates: start: 20000621, end: 200501
  35. MABTHERA [Suspect]
     Active Substance: RITUXIMAB
     Dosage: 6 COURSES OF R-CHOP
     Route: 042
     Dates: start: 200502
  36. ETOPOPHOS [Suspect]
     Active Substance: ETOPOSIDE PHOSPHATE
     Dosage: D2, D3 AND D4, R-MINE COURSE 2
     Route: 042
     Dates: start: 20050831

REACTIONS (6)
  - Basal cell carcinoma [Recovered/Resolved]
  - Therapy responder [Unknown]
  - Non-Hodgkin^s lymphoma recurrent [Unknown]
  - Basal cell carcinoma [Recovered/Resolved]
  - Basal cell carcinoma [Recovered/Resolved]
  - Basal cell carcinoma [Recovered/Resolved]

NARRATIVE: CASE EVENT DATE: 200802
